FAERS Safety Report 4947094-2 (Version None)
Quarter: 2006Q1

REPORT INFORMATION
  Report Type: 
  Country: None (occurrence: None)
  Receive Date: 20060201
  Receipt Date: 20051209
  Transmission Date: 20060701
  Serious: No
  Sender: FDA-Public Use
  Company Number: 2005PV005606

PATIENT
  Age: 55 Year
  Sex: Male

DRUGS (5)
  1. BYETTA [Suspect]
     Indication: DIABETES MELLITUS
     Dosage: 6.25 MCG;SC    5 MCG;TID;SC
     Route: 058
     Dates: start: 20051101, end: 20051206
  2. BYETTA [Suspect]
     Indication: DIABETES MELLITUS
     Dosage: 6.25 MCG;SC    5 MCG;TID;SC
     Route: 058
     Dates: start: 20051207, end: 20051208
  3. NOVOLOG [Concomitant]
  4. LANTUS [Concomitant]
  5. BLOOD CLOT MEDICATION (UNKNOWN NAME) [Concomitant]

REACTIONS (2)
  - MEDICATION ERROR [None]
  - VENA CAVA FILTER INSERTION [None]
